FAERS Safety Report 8287308-7 (Version None)
Quarter: 2012Q2

REPORT INFORMATION
  Report Type: 
  Country: None (occurrence: None)
  Receive Date: 20120416
  Receipt Date: 20120416
  Transmission Date: 20120825
  Serious: Yes (Other)
  Sender: FDA-Public Use
  Company Number: None

PATIENT
  Age: 19 Year
  Sex: Female
  Weight: 94.347 kg

DRUGS (1)
  1. PHENTERMINE [Suspect]
     Indication: OBESITY
     Dosage: ONE PILL
     Route: 048
     Dates: start: 20120412, end: 20120612

REACTIONS (12)
  - DECREASED APPETITE [None]
  - NIGHTMARE [None]
  - OROPHARYNGEAL PAIN [None]
  - DRY MOUTH [None]
  - SALIVARY HYPERSECRETION [None]
  - PARANOIA [None]
  - VOMITING [None]
  - FEAR [None]
  - TREMOR [None]
  - URINE ODOUR ABNORMAL [None]
  - INSOMNIA [None]
  - SOMNOLENCE [None]
